FAERS Safety Report 12302488 (Version 1)
Quarter: 2016Q2

REPORT INFORMATION
  Report Type: Spontaneous
  Country: US (occurrence: US)
  Receive Date: 20160425
  Receipt Date: 20160425
  Transmission Date: 20160815
  Serious: Yes (Hospitalization, Other)
  Sender: FDA-Public Use
  Company Number: US-SA-200619600US

PATIENT
  Age: 75 Year
  Sex: Male
  Weight: 70.9 kg

DRUGS (7)
  1. LOVENOX [Suspect]
     Active Substance: ENOXAPARIN SODIUM
     Indication: ARTERIAL STENT INSERTION
     Route: 058
     Dates: start: 20061017, end: 20061022
  2. LOVENOX [Suspect]
     Active Substance: ENOXAPARIN SODIUM
     Indication: ARTERIAL STENT INSERTION
     Route: 065
     Dates: start: 201512
  3. LOVENOX [Suspect]
     Active Substance: ENOXAPARIN SODIUM
     Indication: THROMBOSIS PROPHYLAXIS
     Route: 058
     Dates: start: 20061017, end: 20061022
  4. PLAVIX [Concomitant]
     Active Substance: CLOPIDOGREL BISULFATE
     Dosage: DOSE UNIT: 75 MG
     Dates: start: 200610
  5. ASA [Concomitant]
     Active Substance: ASPIRIN
     Dosage: DOSE UNIT: 81 MG
     Dates: start: 200610
  6. LOVENOX [Suspect]
     Active Substance: ENOXAPARIN SODIUM
     Indication: THROMBOSIS PROPHYLAXIS
     Route: 065
     Dates: start: 201512
  7. ELIQUIS [Concomitant]
     Active Substance: APIXABAN
     Indication: ATRIAL FIBRILLATION

REACTIONS (5)
  - Haematoma [Recovered/Resolved with Sequelae]
  - Injection site pain [Unknown]
  - Injection site bruising [Unknown]
  - Pain [Unknown]
  - Deep vein thrombosis [Unknown]

NARRATIVE: CASE EVENT DATE: 20061020
